FAERS Safety Report 17973575 (Version 1)
Quarter: 2020Q3

REPORT INFORMATION
  Report Type: Spontaneous
  Country: US (occurrence: US)
  Receive Date: 20200701
  Receipt Date: 20200701
  Transmission Date: 20201103
  Serious: Yes (Disabling)
  Sender: FDA-Public Use
  Company Number: None

PATIENT
  Age: 35 Year
  Sex: Male

DRUGS (2)
  1. OLD SPICE SHOWER + BATH LIQUID BODY WASH [Suspect]
     Active Substance: COSMETICS
     Route: 061
     Dates: end: 202004
  2. OLD SPICE FRESH HIGH ENDURANCE [Suspect]
     Active Substance: ALUMINUM ZIRCONIUM TRICHLOROHYDREX GLY
     Route: 061
     Dates: start: 202004, end: 202004

REACTIONS (4)
  - Dermatitis contact [None]
  - Skin burning sensation [None]
  - Pain of skin [None]
  - Chemical burn of skin [None]
